FAERS Safety Report 8848274 (Version 1)
Quarter: 2012Q4

REPORT INFORMATION
  Report Type: Report from Study
  Country: US (occurrence: US)
  Receive Date: 20121018
  Receipt Date: 20121018
  Transmission Date: 20130627
  Serious: Yes (Other)
  Sender: FDA-Public Use
  Company Number: US-JNJFOC-20121007497

PATIENT
  Age: 66 None
  Sex: Female
  Weight: 58.97 kg

DRUGS (6)
  1. XARELTO [Suspect]
     Indication: CEREBROVASCULAR ACCIDENT PROPHYLAXIS
     Route: 048
     Dates: start: 20121004
  2. XARELTO [Suspect]
     Indication: ATRIAL FIBRILLATION
     Route: 048
     Dates: start: 20121004
  3. PANTOPRAZOLE [Concomitant]
     Indication: GASTROOESOPHAGEAL REFLUX DISEASE
     Route: 048
     Dates: start: 201205
  4. MICROZIDE [Concomitant]
     Indication: HYPERTENSION
     Route: 048
     Dates: start: 201209
  5. DILTIAZEM [Concomitant]
     Indication: PALPITATIONS
     Route: 048
     Dates: start: 201208
  6. VENLAFAXINE [Concomitant]
     Indication: ANXIETY
     Route: 048
     Dates: start: 201205

REACTIONS (3)
  - Cardiac flutter [Recovered/Resolved]
  - Asthenia [Recovered/Resolved]
  - International normalised ratio decreased [Unknown]
